FAERS Safety Report 11737332 (Version 4)
Quarter: 2016Q1

REPORT INFORMATION
  Report Type: Report from Study
  Country: FR (occurrence: FR)
  Receive Date: 20151113
  Receipt Date: 20160108
  Transmission Date: 20160525
  Serious: Yes (Life-Threatening, Hospitalization, Other)
  Sender: FDA-Public Use
  Company Number: FR-CELGENE-FRA-2015110713

PATIENT
  Age: 70 Year

DRUGS (9)
  1. FLUOROURACILE [Suspect]
     Active Substance: FLUOROURACIL
     Dosage: 4650MG
     Route: 065
     Dates: end: 20151028
  2. FLUOROURACILE [Suspect]
     Active Substance: FLUOROURACIL
     Indication: ADENOCARCINOMA GASTRIC
     Dosage: 4650MG
     Route: 065
     Dates: start: 20150708
  3. LEUCOVORIN. [Suspect]
     Active Substance: LEUCOVORIN
     Indication: ADENOCARCINOMA GASTRIC
     Dosage: 765MG
     Route: 065
     Dates: start: 20150708
  4. LEUCOVORIN. [Suspect]
     Active Substance: LEUCOVORIN
     Dosage: 765MG
     Route: 065
     Dates: end: 20151028
  5. ABRAXANE [Suspect]
     Active Substance: PACLITAXEL
     Indication: ADENOCARCINOMA GASTRIC
     Dosage: 290MG
     Route: 041
     Dates: start: 20150708
  6. ABRAXANE [Suspect]
     Active Substance: PACLITAXEL
     Dosage: 290MG
     Route: 041
     Dates: end: 20151028
  7. OXALIPLATIN. [Suspect]
     Active Substance: OXALIPLATIN
     Indication: ADENOCARCINOMA GASTRIC
     Dosage: 85MG/M2
     Route: 065
     Dates: start: 20150708
  8. OXALIPLATIN. [Suspect]
     Active Substance: OXALIPLATIN
     Dosage: 85MG/M2
     Route: 065
     Dates: end: 20151028
  9. ZANIDIP [Concomitant]
     Active Substance: LERCANIDIPINE HYDROCHLORIDE
     Indication: PRODUCT USED FOR UNKNOWN INDICATION
     Route: 065

REACTIONS (1)
  - Vocal cord paralysis [Recovered/Resolved]

NARRATIVE: CASE EVENT DATE: 20151014
